FAERS Safety Report 6234438-7 (Version None)
Quarter: 2009Q2

REPORT INFORMATION
  Report Type: 
  Country: None (occurrence: None)
  Receive Date: 20090618
  Receipt Date: 20090610
  Transmission Date: 20091009
  Serious: Yes (Hospitalization)
  Sender: FDA-Public Use
  Company Number: US-ROCHE-637963

PATIENT
  Sex: Male
  Weight: 108.9 kg

DRUGS (10)
  1. PEG-INTERFERON ALFA 2A (RO 25-8310) [Suspect]
     Dosage: DRUG WAS PERMANENTLY DISCONTINUED, FORM : SYRINGE.
     Route: 048
     Dates: start: 20090428, end: 20090529
  2. RIBAVIRIN [Suspect]
     Dosage: FORM : PILLS, DRUG WAS PERMANENTLY DISCONTINUED.
     Route: 048
     Dates: start: 20090428, end: 20090529
  3. LEVEMIR [Concomitant]
     Dosage: REPORTED DRUG : LEVEMIR MDV, TDD : 20 UNITS.
     Dates: start: 20081001
  4. NOVOLOG [Concomitant]
     Dosage: TDD : 10 UNITS.
     Dates: start: 20081001
  5. METFORMIN HYDROCHLORIDE [Concomitant]
     Dosage: TDD : 500 MG, FREQUENCY : BID.
     Dates: start: 20080401
  6. CRESTOR [Concomitant]
     Dosage: TDD : 10 MG.
     Dates: start: 20090201
  7. FUROSEMIDE [Concomitant]
     Dates: start: 20090101
  8. DIOVAN HCT [Concomitant]
     Dosage: TDD : 11.0 - 12.5MG
     Dates: start: 20080401
  9. POTASSIUM CHLORIDE [Concomitant]
     Dates: start: 20090101
  10. TEKTURNA [Concomitant]
     Dosage: TDD : 300MG
     Dates: start: 20090101

REACTIONS (1)
  - CONVULSION [None]
